FAERS Safety Report 4823513-7 (Version None)
Quarter: 2005Q4

REPORT INFORMATION
  Report Type: 
  Country: None (occurrence: None)
  Receive Date: 20051107
  Receipt Date: 20051031
  Transmission Date: 20060501
  Serious: Yes (Death, Hospitalization, Other)
  Sender: FDA-Public Use
  Company Number: 2004078004

PATIENT
  Age: 82 Year
  Sex: Female
  Weight: 51.6 kg

DRUGS (6)
  1. ATORVASTATIN CALCIUM [Suspect]
     Indication: BLOOD CHOLESTEROL INCREASED
     Dosage: 10 MG (10 MG, 1 IN 1 D), ORAL
     Route: 048
     Dates: start: 20040430, end: 20040504
  2. TRIMETHOPRIM [Concomitant]
  3. FLUOXETINE [Concomitant]
  4. RABEPRAZOLE SODIUM [Concomitant]
  5. CLOPIDOGREL BISULFATE [Concomitant]
  6. ACETYLSALICYLIC ACID SRT [Concomitant]

REACTIONS (18)
  - ANAEMIA [None]
  - ATRIAL FIBRILLATION [None]
  - BLOOD POTASSIUM DECREASED [None]
  - CARDIAC ARREST [None]
  - COLLAPSE OF LUNG [None]
  - DIET REFUSAL [None]
  - GASTRITIS [None]
  - GENERAL PHYSICAL HEALTH DETERIORATION [None]
  - HEPATIC ENCEPHALOPATHY [None]
  - HEPATITIS FULMINANT [None]
  - HEPATORENAL FAILURE [None]
  - INTERNATIONAL NORMALISED RATIO INCREASED [None]
  - LUNG CONSOLIDATION [None]
  - MALAISE [None]
  - MYOCARDIAL INFARCTION [None]
  - MYOCARDIAL ISCHAEMIA [None]
  - PLEURAL EFFUSION [None]
  - URINARY TRACT INFECTION [None]
